FAERS Safety Report 11268564 (Version 4)
Quarter: 2016Q3

REPORT INFORMATION
  Report Type: Spontaneous
  Country: US (occurrence: US)
  Receive Date: 20150714
  Receipt Date: 20160912
  Transmission Date: 20161109
  Serious: Yes (Hospitalization, Other)
  Sender: FDA-Public Use
  Company Number: US-JNJFOC-20150705856

PATIENT
  Age: 62 Year
  Sex: Male

DRUGS (2)
  1. XARELTO [Suspect]
     Active Substance: RIVAROXABAN
     Indication: HAEMOPTYSIS
     Dosage: 15MG AND 20MG
     Route: 048
     Dates: start: 20141001, end: 20150424
  2. XARELTO [Suspect]
     Active Substance: RIVAROXABAN
     Indication: HAEMOPTYSIS
     Dosage: 15MG AND 20MG
     Route: 048
     Dates: start: 20130821, end: 20150909

REACTIONS (4)
  - Haemoptysis [Unknown]
  - Off label use [Unknown]
  - Product use issue [Unknown]
  - Internal haemorrhage [Unknown]

NARRATIVE: CASE EVENT DATE: 201504
